FAERS Safety Report 11804363 (Version 1)
Quarter: 2015Q4

REPORT INFORMATION
  Report Type: Spontaneous
  Country: US (occurrence: US)
  Receive Date: 20151204
  Receipt Date: 20151204
  Transmission Date: 20160305
  Serious: No
  Sender: FDA-Public Use
  Company Number: US-BAUSCH-BL-2014-010106

PATIENT
  Sex: Male

DRUGS (2)
  1. XENAZINE [Suspect]
     Active Substance: TETRABENAZINE
     Indication: TIC
  2. XENAZINE [Suspect]
     Active Substance: TETRABENAZINE
     Indication: DYSKINESIA
     Dosage: HALF TABLET (12.5 MG) EVERY NIGHT AT BEDTIME, HALF TABLET TWICE DAILY, HALF TABLETS THREE TIMES DAIL
     Route: 048

REACTIONS (3)
  - Musculoskeletal stiffness [Unknown]
  - Intentional product use issue [Unknown]
  - Paraesthesia [Unknown]

NARRATIVE: CASE EVENT DATE: 2014
